FAERS Safety Report 5167630-3 (Version None)
Quarter: 2006Q4

REPORT INFORMATION
  Report Type: 
  Country: None (occurrence: None)
  Receive Date: 20061204
  Receipt Date: 20061204
  Transmission Date: 20070319
  Serious: Yes (Other)
  Sender: FDA-Public Use
  Company Number: None

PATIENT
  Sex: Female
  Weight: 104.3273 kg

DRUGS (1)
  1. CYCLOBENZAPRINE 10 MG TEL-DRUG [Suspect]
     Indication: MUSCLE SPASMS
     Dosage: 10 MG THREE TIMES DAILY PO
     Route: 048
     Dates: start: 20061123, end: 20061129

REACTIONS (1)
  - DYSPHEMIA [None]
